FAERS Safety Report 10948458 (Version 1)
Quarter: 2015Q1

REPORT INFORMATION
  Report Type: Spontaneous
  Country: US (occurrence: None)
  Receive Date: 20150220
  Receipt Date: 20150220
  Transmission Date: 20150721
  Serious: No
  Sender: FDA-Public Use
  Company Number: 1000073248

PATIENT
  Sex: Female

DRUGS (1)
  1. TUDORZA PRESSAIR [Suspect]
     Active Substance: ACLIDINIUM BROMIDE
     Indication: CHRONIC OBSTRUCTIVE PULMONARY DISEASE
     Route: 048
     Dates: start: 20141031, end: 20141209

REACTIONS (4)
  - Muscle spasms [None]
  - Arthralgia [None]
  - Intentional product misuse [None]
  - Pain in extremity [None]

NARRATIVE: CASE EVENT DATE: 20141031
